FAERS Safety Report 7838034-7 (Version None)
Quarter: 2011Q4

REPORT INFORMATION
  Report Type: 
  Country: None (occurrence: None)
  Receive Date: 20111024
  Receipt Date: 20100406
  Transmission Date: 20120403
  Serious: No
  Sender: FDA-Public Use
  Company Number: CA-BAYER-201019392NA

PATIENT
  Age: 43 Year
  Sex: Male

DRUGS (1)
  1. LEVITRA [Suspect]
     Dosage: 10 MG, UNK

REACTIONS (1)
  - DRUG INEFFECTIVE [None]
